FAERS Safety Report 13720862 (Version 2)
Quarter: 2017Q4

REPORT INFORMATION
  Report Type: Spontaneous
  Country: US (occurrence: US)
  Receive Date: 20170706
  Receipt Date: 20171128
  Transmission Date: 20180320
  Serious: Yes (Other)
  Sender: FDA-Public Use
  Company Number: US-ASTRAZENECA-2017SE68358

PATIENT
  Age: 27224 Day
  Sex: Female
  Weight: 84 kg

DRUGS (21)
  1. NEXIUM 24HR [Suspect]
     Active Substance: ESOMEPRAZOLE MAGNESIUM
     Indication: GASTRIC PH DECREASED
     Route: 048
     Dates: start: 1995, end: 2016
  2. PRILOSEC [Suspect]
     Active Substance: OMEPRAZOLE MAGNESIUM
     Indication: GASTRIC PH DECREASED
     Route: 048
     Dates: start: 1995, end: 2016
  3. LEVOTHYROXINE SODIUM. [Concomitant]
     Active Substance: LEVOTHYROXINE SODIUM
     Route: 048
     Dates: start: 20160922
  4. DEXILANT [Suspect]
     Active Substance: DEXLANSOPRAZOLE
     Indication: GASTRIC PH DECREASED
     Route: 065
     Dates: start: 1995, end: 2016
  5. ELIQUIS [Concomitant]
     Active Substance: APIXABAN
     Route: 048
     Dates: start: 20160922
  6. LIPITOR [Concomitant]
     Active Substance: ATORVASTATIN CALCIUM
     Route: 048
     Dates: start: 20161116
  7. VALSARTAN. [Concomitant]
     Active Substance: VALSARTAN
     Route: 048
     Dates: start: 20160922
  8. PANTOPRAZOLE SODIUM. [Suspect]
     Active Substance: PANTOPRAZOLE SODIUM
     Indication: GASTRIC PH DECREASED
     Route: 048
     Dates: start: 20160922
  9. ISOSORBIDE MONONITRATE. [Concomitant]
     Active Substance: ISOSORBIDE MONONITRATE
     Route: 048
     Dates: start: 20160922
  10. PANTOPRAZOLE SODIUM. [Suspect]
     Active Substance: PANTOPRAZOLE SODIUM
     Indication: GASTRIC PH DECREASED
     Route: 065
     Dates: start: 1995, end: 2016
  11. SODIUM BICARBONATE. [Suspect]
     Active Substance: SODIUM BICARBONATE
     Indication: GASTRIC PH DECREASED
     Route: 065
     Dates: start: 1995, end: 2016
  12. SODIUM BICARBONATE. [Suspect]
     Active Substance: SODIUM BICARBONATE
     Indication: GASTRIC PH DECREASED
     Route: 048
     Dates: start: 20160912
  13. PRILOSEC OTC [Suspect]
     Active Substance: OMEPRAZOLE MAGNESIUM
     Indication: GASTRIC PH DECREASED
     Route: 048
     Dates: start: 1995, end: 2016
  14. FUROSEMIDE. [Concomitant]
     Active Substance: FUROSEMIDE
     Route: 048
     Dates: start: 20160922
  15. ASPIRIN. [Concomitant]
     Active Substance: ASPIRIN
     Route: 048
     Dates: start: 20160922
  16. ENOXAPARIN [Concomitant]
     Active Substance: ENOXAPARIN
     Route: 048
     Dates: start: 20161116
  17. ULORIC [Concomitant]
     Active Substance: FEBUXOSTAT
     Route: 048
     Dates: start: 20160922
  18. NEXIUM [Suspect]
     Active Substance: ESOMEPRAZOLE MAGNESIUM
     Indication: GASTRIC PH DECREASED
     Route: 048
     Dates: start: 1995, end: 2016
  19. HYDRALAZINE HYDROCHLORIDE. [Concomitant]
     Active Substance: HYDRALAZINE HYDROCHLORIDE
     Route: 048
     Dates: start: 20160922
  20. AMIODARONE HYDROCHLORIDE. [Concomitant]
     Active Substance: AMIODARONE HYDROCHLORIDE
     Route: 048
     Dates: start: 20160922
  21. FUROSEMIDE. [Concomitant]
     Active Substance: FUROSEMIDE
     Route: 042
     Dates: start: 20160716

REACTIONS (5)
  - Acute kidney injury [Unknown]
  - Chronic kidney disease [Unknown]
  - Renal failure [Unknown]
  - Tubulointerstitial nephritis [Unknown]
  - End stage renal disease [Unknown]

NARRATIVE: CASE EVENT DATE: 20160629
